FAERS Safety Report 16219425 (Version 2)
Quarter: 2019Q2

REPORT INFORMATION
  Report Type: Spontaneous
  Country: US (occurrence: US)
  Receive Date: 20190420
  Receipt Date: 20190520
  Transmission Date: 20190711
  Serious: No
  Sender: FDA-Public Use
  Company Number: PHEH2019US016142

PATIENT
  Sex: Female

DRUGS (1)
  1. NEVANAC [Suspect]
     Active Substance: NEPAFENAC
     Indication: PRODUCT USED FOR UNKNOWN INDICATION
     Route: 065

REACTIONS (7)
  - Palpitations [Unknown]
  - Eye irritation [Unknown]
  - Panic attack [Unknown]
  - Blepharospasm [Unknown]
  - Pharyngeal swelling [Unknown]
  - Swollen tongue [Unknown]
  - Gingival pain [Unknown]
